FAERS Safety Report 5788255-2 (Version None)
Quarter: 2008Q2

REPORT INFORMATION
  Report Type: 
  Country: None (occurrence: None)
  Receive Date: 20080625
  Receipt Date: 20080612
  Transmission Date: 20081010
  Serious: Yes (Other)
  Sender: FDA-Public Use
  Company Number: GB-PFIZER INC-2008048436

PATIENT
  Age: 33 Year
  Sex: Male

DRUGS (2)
  1. VIAGRA [Suspect]
     Route: 048
  2. ALCOHOL [Concomitant]

REACTIONS (3)
  - BLINDNESS TRANSIENT [None]
  - OVERDOSE [None]
  - PENIS DISORDER [None]
